FAERS Safety Report 13512919 (Version 1)
Quarter: 2017Q2

REPORT INFORMATION
  Report Type: Spontaneous
  Country: BR (occurrence: BR)
  Receive Date: 20170504
  Receipt Date: 20170504
  Transmission Date: 20170830
  Serious: Yes (Death, Other)
  Sender: FDA-Public Use
  Company Number: BR-JNJFOC-20170502421

PATIENT
  Age: 90 Year
  Sex: Female

DRUGS (4)
  1. RIVOTRIL [Concomitant]
     Active Substance: CLONAZEPAM
     Indication: PAIN
     Route: 065
     Dates: end: 20170124
  2. XALATAN [Concomitant]
     Active Substance: LATANOPROST
     Indication: GLAUCOMA
     Route: 047
     Dates: start: 2010, end: 201701
  3. FORTEO [Concomitant]
     Active Substance: TERIPARATIDE
     Indication: PRODUCT USED FOR UNKNOWN INDICATION
     Route: 065
     Dates: start: 201408
  4. TRAMAL [Suspect]
     Active Substance: TRAMADOL
     Indication: PAIN
     Route: 042
     Dates: start: 20170120, end: 20170124

REACTIONS (7)
  - Cardiac arrest [Unknown]
  - Femur fracture [Unknown]
  - Confusional state [Unknown]
  - Dyspnoea [Fatal]
  - Fall [Unknown]
  - Pulmonary embolism [Fatal]
  - Shock [Fatal]

NARRATIVE: CASE EVENT DATE: 20170120
